FAERS Safety Report 9581245 (Version 2)
Quarter: 2013Q4

REPORT INFORMATION
  Report Type: Spontaneous
  Country: JP (occurrence: JP)
  Receive Date: 20131002
  Receipt Date: 20131010
  Transmission Date: 20140711
  Serious: Yes (Hospitalization, Other)
  Sender: FDA-Public Use
  Company Number: PHHY2013JP108208

PATIENT
  Age: 62 Year
  Sex: Male

DRUGS (3)
  1. CICLOSPORIN [Suspect]
     Indication: NEPHROTIC SYNDROME
     Route: 048
  2. PREDNISOLONE [Suspect]
     Indication: NEPHROTIC SYNDROME
  3. MIZORIBINE [Suspect]
     Indication: NEPHROTIC SYNDROME

REACTIONS (12)
  - Abdominal abscess [Unknown]
  - Inflammation [Recovering/Resolving]
  - Colon adenoma [Unknown]
  - Colon cancer [Unknown]
  - Abdominal neoplasm [Unknown]
  - Abdominal pain [Unknown]
  - Condition aggravated [Unknown]
  - Muscular weakness [Unknown]
  - Protein urine present [Recovering/Resolving]
  - Oedema [Unknown]
  - Nephrotic syndrome [Recovered/Resolved]
  - Drug ineffective [Unknown]
